FAERS Safety Report 9219331 (Version 1)
Quarter: 2013Q2

REPORT INFORMATION
  Report Type: Report from Study
  Country: US (occurrence: US)
  Receive Date: 20130409
  Receipt Date: 20130409
  Transmission Date: 20140414
  Serious: Yes (Other)
  Sender: FDA-Public Use
  Company Number: US-PURDUE-USA-2013-0100526

PATIENT
  Age: 56 Year
  Sex: Female

DRUGS (2)
  1. OXYCONTIN (NDA 22-272) [Suspect]
     Indication: PRODUCT USED FOR UNKNOWN INDICATION
     Dosage: 40 MG, AM
  2. OXYCONTIN (NDA 22-272) [Suspect]
     Dosage: 40 MG, UNK
     Route: 048

REACTIONS (3)
  - Breast cancer metastatic [Not Recovered/Not Resolved]
  - Compression fracture [Not Recovered/Not Resolved]
  - Rib fracture [Not Recovered/Not Resolved]
